FAERS Safety Report 5376064-8 (Version None)
Quarter: 2007Q3

REPORT INFORMATION
  Report Type: 
  Country: None (occurrence: None)
  Receive Date: 20070702
  Receipt Date: 20070702
  Transmission Date: 20080115
  Serious: Yes (Death, Other)
  Sender: FDA-Public Use
  Company Number: None

PATIENT
  Age: 70 Year
  Sex: Female

DRUGS (6)
  1. ADRIAMYCIN PFS [Suspect]
     Indication: BREAST CANCER
     Dosage: 100 MG IV
     Route: 042
     Dates: start: 19981012, end: 19990127
  2. FLUOROURACIL [Suspect]
     Indication: BREAST CANCER
     Dosage: 1 G IV
     Route: 042
     Dates: start: 19981012, end: 19990127
  3. CYCLOPHOSPHAMIDE [Suspect]
     Indication: BREAST CANCER
     Dosage: 1 G
     Dates: start: 19981012, end: 19990127
  4. RADIOTHERAPY [Suspect]
     Indication: BREAST CANCER
     Dates: start: 19990218, end: 19990324
  5. NITRO MACK [Concomitant]
  6. DIAMICRON [Concomitant]

REACTIONS (3)
  - CARDIAC FAILURE CONGESTIVE [None]
  - CORONARY ARTERY DISEASE [None]
  - MYOCARDIAL ISCHAEMIA [None]
